FAERS Safety Report 4359258-X (Version None)
Quarter: 2004Q2

REPORT INFORMATION
  Report Type: 
  Country: None (occurrence: None)
  Receive Date: 20040512
  Receipt Date: 20040422
  Transmission Date: 20050107
  Serious: Yes (Hospitalization)
  Sender: FDA-Public Use
  Company Number: US_0404102589

PATIENT
  Age: 50 Year
  Sex: Female
  Weight: 72 kg

DRUGS (4)
  1. HUMATROPE [Suspect]
     Indication: GROWTH HORMONE DEFICIENCY
     Dates: start: 19971028, end: 20031101
  2. PREMARIN [Concomitant]
  3. PROVERA [Concomitant]
  4. SYNTHROID [Concomitant]

REACTIONS (1)
  - LOCALISED OSTEOARTHRITIS [None]
